FAERS Safety Report 6109279-1 (Version None)
Quarter: 2009Q1

REPORT INFORMATION
  Report Type: 
  Country: None (occurrence: None)
  Receive Date: 20090310
  Receipt Date: 20090302
  Transmission Date: 20090719
  Serious: Yes (Other)
  Sender: FDA-Public Use
  Company Number: US-ABBOTT-09P-163-0559967-00

PATIENT
  Sex: Male
  Weight: 93.07 kg

DRUGS (4)
  1. HUMIRA [Suspect]
     Indication: PSORIASIS
     Route: 058
     Dates: start: 20060101, end: 20081001
  2. HUMIRA [Suspect]
     Indication: PSORIATIC ARTHROPATHY
     Route: 058
     Dates: start: 20090101
  3. DICLOFENAC SODIUM 3% (SOLARAZE GEL) (NON-ABBOTT) [Suspect]
     Indication: PHOTODERMATOSIS
     Dosage: APPLY TO SUN DAMAGED AREAS OF BODY
     Route: 061
     Dates: start: 20080901, end: 20081001
  4. ADVIL [Concomitant]
     Indication: ARTHRALGIA

REACTIONS (5)
  - BASAL CELL CARCINOMA [None]
  - EXOSTOSIS [None]
  - RASH [None]
  - RASH PRURITIC [None]
  - SQUAMOUS CELL CARCINOMA [None]
